FAERS Safety Report 11467578 (Version 1)
Quarter: 2015Q3

REPORT INFORMATION
  Report Type: Spontaneous
  Country: US (occurrence: None)
  Receive Date: 20150904
  Receipt Date: 20150904
  Transmission Date: 20151125
  Serious: Yes (Hospitalization)
  Sender: FDA-Public Use
  Company Number: None

PATIENT
  Age: 65 Year
  Sex: Male
  Weight: 116.5 kg

DRUGS (2)
  1. CASODEX [Suspect]
     Active Substance: BICALUTAMIDE
     Dates: end: 20150827
  2. LEUPROLIDE ACETATE. [Suspect]
     Active Substance: LEUPROLIDE ACETATE
     Dates: end: 20150602

REACTIONS (8)
  - Constipation [None]
  - Rectal fissure [None]
  - Proctitis [None]
  - Rash [None]
  - Proctalgia [None]
  - Diarrhoea [None]
  - Perineal pain [None]
  - Frequent bowel movements [None]

NARRATIVE: CASE EVENT DATE: 20150827
